FAERS Safety Report 11470100 (Version 2)
Quarter: 2015Q3

REPORT INFORMATION
  Report Type: Spontaneous
  Country: US (occurrence: US)
  Receive Date: 20150903
  Receipt Date: 20150903
  Transmission Date: 20151125
  Serious: No
  Sender: FDA-Public Use
  Company Number: US-ELI_LILLY_AND_COMPANY-US201111003871

PATIENT
  Age: 54 Year
  Sex: Male

DRUGS (1)
  1. CYMBALTA [Suspect]
     Active Substance: DULOXETINE HYDROCHLORIDE
     Indication: DEPRESSION
     Dosage: 30 MG, QD
     Dates: start: 20111008

REACTIONS (9)
  - Confusional state [Unknown]
  - Dizziness [Unknown]
  - Feeling cold [Not Recovered/Not Resolved]
  - Myalgia [Unknown]
  - Fatigue [Unknown]
  - Fear [Unknown]
  - Somnolence [Unknown]
  - Disturbance in attention [Unknown]
  - Anxiety [Unknown]

NARRATIVE: CASE EVENT DATE: 201110
